FAERS Safety Report 4951675-X (Version None)
Quarter: 2006Q1

REPORT INFORMATION
  Report Type: 
  Country: None (occurrence: None)
  Receive Date: 20060320
  Receipt Date: 20060302
  Transmission Date: 20060701
  Serious: Yes (Hospitalization)
  Sender: FDA-Public Use
  Company Number: 222986

PATIENT
  Age: 72 Year
  Sex: Male
  Weight: 78.5 kg

DRUGS (4)
  1. AVASTIN [Suspect]
     Indication: COLORECTAL CANCER METASTATIC
     Dosage: 410 MG, Q2W, INTRAVENOUS
     Route: 042
     Dates: start: 20051123, end: 20060228
  2. OXALIPLATIN (OXALIPLATIN) [Suspect]
     Indication: COLORECTAL CANCER METASTATIC
     Dosage: 191 MG,
     Dates: start: 20051123
  3. FLUOROURACIL [Suspect]
     Indication: COLORECTAL CANCER METASTATIC
     Dosage: 764 MG,
     Dates: start: 20051123
  4. LEUCOVORIN CALCIUM [Concomitant]

REACTIONS (3)
  - ARRHYTHMIA [None]
  - BRADYCARDIA [None]
  - VENTRICULAR EXTRASYSTOLES [None]
